FAERS Safety Report 9553026 (Version 1)
Quarter: 2013Q3

REPORT INFORMATION
  Report Type: Spontaneous
  Country: US (occurrence: US)
  Receive Date: 20130925
  Receipt Date: 20130925
  Transmission Date: 20140515
  Serious: No
  Sender: FDA-Public Use
  Company Number: US-009507513-1309USA007648

PATIENT
  Age: 31 Year
  Sex: Female
  Weight: 104.31 kg

DRUGS (1)
  1. IMPLANON [Suspect]
     Indication: CONTRACEPTION
     Dosage: SINGLE ROD
     Route: 059
     Dates: start: 20120917

REACTIONS (2)
  - Implant site mass [Not Recovered/Not Resolved]
  - Implant site pain [Not Recovered/Not Resolved]
